FAERS Safety Report 4536940-2 (Version None)
Quarter: 2004Q4

REPORT INFORMATION
  Report Type: 
  Country: None (occurrence: None)
  Receive Date: 20041220
  Receipt Date: 20041202
  Transmission Date: 20050328
  Serious: Yes (Death)
  Sender: FDA-Public Use
  Company Number: DSA_25467_2004

PATIENT
  Sex: Female

DRUGS (1)
  1. CARDIZEM [Suspect]
     Dosage: DF

REACTIONS (1)
  - DEATH [None]
